FAERS Safety Report 8521129-2 (Version None)
Quarter: 2012Q3

REPORT INFORMATION
  Report Type: 
  Country: None (occurrence: None)
  Receive Date: 20120712
  Receipt Date: 20120712
  Transmission Date: 20120928
  Serious: Yes (Other)
  Sender: FDA-Public Use
  Company Number: None

PATIENT
  Age: 31 Year
  Sex: Male
  Weight: 102.0593 kg

DRUGS (1)
  1. CYMBALTA [Suspect]

REACTIONS (1)
  - UNEVALUABLE EVENT [None]
